FAERS Safety Report 17003870 (Version 1)
Quarter: 2019Q4

REPORT INFORMATION
  Report Type: Spontaneous
  Country: US (occurrence: US)
  Receive Date: 20191107
  Receipt Date: 20191107
  Transmission Date: 20200122
  Serious: No
  Sender: FDA-Public Use
  Company Number: US-009507513-1910USA016442

PATIENT
  Age: 76 Year
  Sex: Male

DRUGS (5)
  1. SINEMET CR [Suspect]
     Active Substance: CARBIDOPA\LEVODOPA
     Indication: PARKINSON^S DISEASE
     Dosage: 50/200 MG EVERY 4 HOURS
     Route: 048
     Dates: start: 2004
  2. SINEMET CR [Suspect]
     Active Substance: CARBIDOPA\LEVODOPA
     Dosage: 50/200 MG EVERY 3 HOURS
     Route: 048
     Dates: start: 2004
  3. CARBIDOPA (+) LEVODOPA [Suspect]
     Active Substance: CARBIDOPA\LEVODOPA
  4. PRAMIPEXOLE. [Concomitant]
     Active Substance: PRAMIPEXOLE
  5. SINEMET [Suspect]
     Active Substance: CARBIDOPA\LEVODOPA
     Indication: PARKINSON^S DISEASE
     Dosage: UNK
     Route: 048
     Dates: start: 2004

REACTIONS (4)
  - Drug ineffective [Unknown]
  - Inappropriate schedule of product administration [Unknown]
  - Adverse event [Not Recovered/Not Resolved]
  - Tremor [Not Recovered/Not Resolved]

NARRATIVE: CASE EVENT DATE: 201810
